FAERS Safety Report 8687688 (Version 3)
Quarter: 2013Q4

REPORT INFORMATION
  Report Type: Spontaneous
  Country: US (occurrence: US)
  Receive Date: 20120727
  Receipt Date: 20131107
  Transmission Date: 20140711
  Serious: Yes (Hospitalization)
  Sender: FDA-Public Use
  Company Number: US-009507513-1207USA008571

PATIENT
  Sex: 0

DRUGS (3)
  1. PEGINTRON [Suspect]
     Indication: HEPATITIS C
     Route: 011
  2. TELAPREVIR [Suspect]
     Route: 048
  3. REBETOL [Suspect]
     Route: 048

REACTIONS (1)
  - Hospitalisation [Unknown]
